FAERS Safety Report 6504900-8 (Version None)
Quarter: 2009Q4

REPORT INFORMATION
  Report Type: 
  Country: None (occurrence: None)
  Receive Date: 20091218
  Receipt Date: 20091208
  Transmission Date: 20100525
  Serious: Yes (Death)
  Sender: FDA-Public Use
  Company Number: JP-WYE-H12609209

PATIENT
  Age: 81 Year
  Sex: Female
  Weight: 53 kg

DRUGS (4)
  1. ANCARON [Suspect]
     Indication: VENTRICULAR TACHYCARDIA
     Route: 048
     Dates: start: 20071102
  2. FRANDOL [Concomitant]
     Dosage: UNSPECIFIED
     Dates: start: 20070821
  3. ASPIRIN [Concomitant]
     Dosage: UNSPECIFIED
     Dates: start: 20070821
  4. CALCIUM POLYSTYRENE SULFONATE [Concomitant]
     Dosage: UNSPECIFIED
     Dates: start: 20070821

REACTIONS (1)
  - DEATH [None]
